FAERS Safety Report 24683966 (Version 1)
Quarter: 2024Q4

REPORT INFORMATION
  Report Type: Spontaneous
  Country: US (occurrence: US)
  Receive Date: 20241202
  Receipt Date: 20241202
  Transmission Date: 20250114
  Serious: Yes (Other)
  Sender: JOHNSON AND JOHNSON
  Company Number: US-JNJFOC-20241136685

PATIENT
  Sex: Male

DRUGS (1)
  1. CARVYKTI [Suspect]
     Active Substance: CILTACABTAGENE AUTOLEUCEL
     Indication: Product used for unknown indication

REACTIONS (6)
  - Loss of personal independence in daily activities [Unknown]
  - Bell^s palsy [Unknown]
  - Neuropathy peripheral [Unknown]
  - Arthralgia [Unknown]
  - Asthenia [Unknown]
  - Muscular weakness [Unknown]
